FAERS Safety Report 13940226 (Version 2)
Quarter: 2017Q4

REPORT INFORMATION
  Report Type: Spontaneous
  Country: TR (occurrence: TR)
  Receive Date: 20170906
  Receipt Date: 20171013
  Transmission Date: 20180320
  Serious: Yes (Other)
  Sender: FDA-Public Use
  Company Number: TR-BAYER-2016-180526

PATIENT
  Age: 24 Year
  Sex: Female

DRUGS (2)
  1. CORASPIN 100 MG [Suspect]
     Active Substance: ASPIRIN
     Indication: ANTIPLATELET THERAPY
     Dosage: 100 MG, UNK
     Dates: start: 201607
  2. HIBOR [Concomitant]
     Active Substance: BEMIPARIN SODIUM
     Dosage: UNK

REACTIONS (5)
  - Swelling [Recovered/Resolved]
  - Hypertension [None]
  - Premature delivery [None]
  - Maternal exposure during pregnancy [None]
  - Eye swelling [Recovered/Resolved]

NARRATIVE: CASE EVENT DATE: 20170201
